FAERS Safety Report 8576939-2 (Version None)
Quarter: 2012Q3

REPORT INFORMATION
  Report Type: 
  Country: None (occurrence: None)
  Receive Date: 20120807
  Receipt Date: 20120803
  Transmission Date: 20120928
  Serious: Yes (Other)
  Sender: FDA-Public Use
  Company Number: PHHY2012MX067889

PATIENT
  Sex: Female

DRUGS (3)
  1. FACICAM [Concomitant]
     Indication: PAIN
     Dosage: 1 DF, DAILY
     Dates: start: 20120701
  2. PANTOPRAZOLE [Concomitant]
     Indication: EPIGASTRIC DISCOMFORT
     Dosage: 1 DF, DAILY
     Dates: start: 20120401
  3. ZOLEDRONOC ACID [Suspect]
     Indication: OSTEOPOROSIS
     Dosage: 5 MG, EACH YEAR
     Route: 042

REACTIONS (4)
  - HYPERTENSION [None]
  - MOBILITY DECREASED [None]
  - ARTHRALGIA [None]
  - HIP FRACTURE [None]
